FAERS Safety Report 15255717 (Version 1)
Quarter: 2018Q3

REPORT INFORMATION
  Report Type: Spontaneous
  Country: US (occurrence: US)
  Receive Date: 20180718
  Receipt Date: 20180718
  Transmission Date: 20181010
  Serious: Yes (Hospitalization, Other)
  Sender: FDA-Public Use
  Company Number: None

PATIENT
  Age: 60 Year
  Sex: Female
  Weight: 72.2 kg

DRUGS (2)
  1. YESCARTA [Suspect]
     Active Substance: AXICABTAGENE CILOLEUCEL
     Indication: DIFFUSE LARGE B-CELL LYMPHOMA
     Route: 041
     Dates: start: 20180402, end: 20180402
  2. WELLBUTRIN (BUPROPION) [Concomitant]

REACTIONS (14)
  - Tachypnoea [None]
  - Cough [None]
  - Dysphagia [None]
  - Dyspnoea [None]
  - Somnolence [None]
  - Confusional state [None]
  - Hypotension [None]
  - Pleural effusion [None]
  - Agitation [None]
  - Encephalopathy [None]
  - Nephropathy toxic [None]
  - Neurotoxicity [None]
  - Tachycardia [None]
  - Substance-induced psychotic disorder [None]

NARRATIVE: CASE EVENT DATE: 20180402
